FAERS Safety Report 14636636 (Version 1)
Quarter: 2018Q1

REPORT INFORMATION
  Report Type: Spontaneous
  Country: US (occurrence: US)
  Receive Date: 20180313
  Receipt Date: 20180313
  Transmission Date: 20180509
  Serious: Yes (Other)
  Sender: FDA-Public Use
  Company Number: None

PATIENT
  Age: 38 Year
  Sex: Female
  Weight: 58.5 kg

DRUGS (23)
  1. PREDNISONE. [Concomitant]
     Active Substance: PREDNISONE
  2. ZOFRAN [Concomitant]
     Active Substance: ONDANSETRON HYDROCHLORIDE
  3. NASCOBAL [Concomitant]
     Active Substance: CYANOCOBALAMIN
  4. TYLENOL WITH CODEINE [Concomitant]
     Active Substance: ACETAMINOPHEN\CODEINE PHOSPHATE
  5. TURMERIC [Concomitant]
     Active Substance: HERBALS\TURMERIC
  6. KLONOPIN [Concomitant]
     Active Substance: CLONAZEPAM
  7. TRAMADOL. [Concomitant]
     Active Substance: TRAMADOL
  8. BUTALBITAL [Concomitant]
     Active Substance: BUTALBITAL
  9. HUMIRA [Suspect]
     Active Substance: ADALIMUMAB
     Indication: RHEUMATOID ARTHRITIS
     Dosage: ?          QUANTITY:1 INJECTION(S);OTHER FREQUENCY:EVERY 2 WEEKS;OTHER ROUTE:SUBCUTANEOUS INJECTION?
     Route: 058
     Dates: start: 20180305, end: 20180305
  10. ZOMIG [Concomitant]
     Active Substance: ZOLMITRIPTAN
  11. SUMATRIPTAN. [Concomitant]
     Active Substance: SUMATRIPTAN
  12. SEROQUEL [Concomitant]
     Active Substance: QUETIAPINE FUMARATE
  13. TYLENOL TENSION [Concomitant]
  14. MIRALAX [Concomitant]
     Active Substance: POLYETHYLENE GLYCOL 3350
  15. VITAMIN D [Concomitant]
     Active Substance: CHOLECALCIFEROL
  16. ADDERALL [Concomitant]
     Active Substance: AMPHETAMINE ASPARTATE\AMPHETAMINE SULFATE\DEXTROAMPHETAMINE SACCHARATE\DEXTROAMPHETAMINE SULFATE
  17. LEVOTHYROXINE. [Concomitant]
     Active Substance: LEVOTHYROXINE
  18. GABAPENTIN. [Concomitant]
     Active Substance: GABAPENTIN
  19. TIGAN [Concomitant]
     Active Substance: TRIMETHOBENZAMIDE HYDROCHLORIDE
  20. METAMUCIL [Concomitant]
     Active Substance: PLANTAGO SEED
  21. LACTAID [Concomitant]
     Active Substance: LACTASE
  22. RANITIDINE. [Concomitant]
     Active Substance: RANITIDINE
  23. ROLAIDS [Concomitant]
     Active Substance: CALCIUM CARBONATE\MAGNESIUM HYDROXIDE

REACTIONS (16)
  - Gait disturbance [None]
  - Migraine [None]
  - Memory impairment [None]
  - Diarrhoea [None]
  - Aphasia [None]
  - Seizure [None]
  - Decreased appetite [None]
  - Visual impairment [None]
  - Asthenia [None]
  - Tremor [None]
  - Fatigue [None]
  - Balance disorder [None]
  - Pain [None]
  - Pyrexia [None]
  - Limb discomfort [None]
  - Muscle spasms [None]

NARRATIVE: CASE EVENT DATE: 20180308
